FAERS Safety Report 12184589 (Version 2)
Quarter: 2016Q2

REPORT INFORMATION
  Report Type: Spontaneous
  Country: DE (occurrence: DE)
  Receive Date: 20160316
  Receipt Date: 20160421
  Transmission Date: 20160815
  Serious: Yes (Hospitalization)
  Sender: FDA-Public Use
  Company Number: DE-BIOGEN-2016BI00201556

PATIENT
  Sex: Female

DRUGS (4)
  1. L-THYROX [Concomitant]
     Active Substance: LEVOTHYROXINE SODIUM
     Indication: PRODUCT USED FOR UNKNOWN INDICATION
     Route: 065
  2. TECFIDERA [Suspect]
     Active Substance: DIMETHYL FUMARATE
     Dosage: MAINTENANCE DOSE
     Route: 048
  3. TECFIDERA [Suspect]
     Active Substance: DIMETHYL FUMARATE
     Indication: RELAPSING-REMITTING MULTIPLE SCLEROSIS
     Dosage: STARTING DOSE
     Route: 048
     Dates: start: 201410
  4. YAZ [Concomitant]
     Active Substance: DROSPIRENONE\ETHINYL ESTRADIOL
     Indication: ORAL CONTRACEPTION
     Route: 048

REACTIONS (9)
  - Flushing [Recovered/Resolved]
  - Limb discomfort [Unknown]
  - Lipoedema [Unknown]
  - Gastrointestinal disorder [Unknown]
  - Colitis [Recovered/Resolved with Sequelae]
  - Multiple sclerosis [Unknown]
  - Monoparesis [Unknown]
  - Photopsia [Unknown]
  - Paraesthesia [Unknown]
